FAERS Safety Report 10300837 (Version 1)
Quarter: 2014Q3

REPORT INFORMATION
  Report Type: Spontaneous
  Country: US (occurrence: US)
  Receive Date: 20140714
  Receipt Date: 20140714
  Transmission Date: 20150326
  Serious: No
  Sender: FDA-Public Use
  Company Number: US-BIOGENIDEC-2014BI063023

PATIENT
  Age: 62 Year
  Sex: Female

DRUGS (2)
  1. TECFIDERA [Suspect]
     Active Substance: DIMETHYL FUMARATE
     Indication: MULTIPLE SCLEROSIS
     Route: 048
  2. TECFIDERA [Suspect]
     Active Substance: DIMETHYL FUMARATE
     Indication: MULTIPLE SCLEROSIS
     Route: 048

REACTIONS (6)
  - Coordination abnormal [Not Recovered/Not Resolved]
  - Thirst [Not Recovered/Not Resolved]
  - Memory impairment [Not Recovered/Not Resolved]
  - Foot fracture [Unknown]
  - Incoherent [Not Recovered/Not Resolved]
  - Ankle fracture [Unknown]

NARRATIVE: CASE EVENT DATE: 201405
